FAERS Safety Report 20795788 (Version 1)
Quarter: 2022Q2

REPORT INFORMATION
  Report Type: Spontaneous
  Country: US (occurrence: US)
  Receive Date: 20220506
  Receipt Date: 20220506
  Transmission Date: 20220721
  Serious: Yes (Death, Life-Threatening, Hospitalization, Other)
  Sender: FDA-Public Use
  Company Number: US-SA-2022SA159985

PATIENT
  Age: 58 Year
  Sex: Male

DRUGS (6)
  1. HYDROCORTISONE [Suspect]
     Active Substance: HYDROCORTISONE
     Indication: Plasma cell myeloma
     Dosage: 2ND DOSE ON 156 DAY
  2. HYDROCORTISONE [Suspect]
     Active Substance: HYDROCORTISONE
     Dosage: 1ST DOSE 50 MG ON 149 DAY
  3. CYCLOPHOSPHAMIDE [Suspect]
     Active Substance: CYCLOPHOSPHAMIDE
     Indication: Plasma cell myeloma
     Dosage: 2ND DOSE 300 MG/M2 ON 156 DAY
     Route: 042
  4. CYCLOPHOSPHAMIDE [Suspect]
     Active Substance: CYCLOPHOSPHAMIDE
     Dosage: 1ST DOSE 300 MG/M2 ON 149 DAY
     Route: 042
  5. CYTARABINE [Suspect]
     Active Substance: CYTARABINE
     Indication: Plasma cell myeloma
     Dosage: 2ND DOSE INTRATHECAL ON DAY 156
  6. CYTARABINE [Suspect]
     Active Substance: CYTARABINE
     Dosage: 1 ST DOSE INTRATHECAL ON DAY 149

REACTIONS (3)
  - Acute respiratory distress syndrome [Fatal]
  - Febrile neutropenia [Fatal]
  - Multiple organ dysfunction syndrome [Fatal]
